FAERS Safety Report 4579290-0 (Version None)
Quarter: 2005Q1

REPORT INFORMATION
  Report Type: 
  Country: None (occurrence: None)
  Receive Date: 20050209
  Receipt Date: 20050124
  Transmission Date: 20050727
  Serious: Yes (Life-Threatening)
  Sender: FDA-Public Use
  Company Number: 2005GB00188

PATIENT
  Age: 25 Year
  Sex: Male

DRUGS (1)
  1. SEROQUEL [Suspect]
     Dosage: 25 MG ONCE PO
     Route: 048
     Dates: start: 20050121

REACTIONS (5)
  - BLOOD PRESSURE DECREASED [None]
  - BRADYCARDIA [None]
  - NAUSEA [None]
  - SINUS ARREST [None]
  - SYNCOPE [None]
